FAERS Safety Report 17039057 (Version 6)
Quarter: 2020Q1

REPORT INFORMATION
  Report Type: Spontaneous
  Country: US (occurrence: US)
  Receive Date: 20191115
  Receipt Date: 20200218
  Transmission Date: 20200409
  Serious: No
  Sender: FDA-Public Use
  Company Number: US-SA-2019SA314129

PATIENT
  Age: 14 Year
  Sex: Female

DRUGS (2)
  1. DUPIXENT [Suspect]
     Active Substance: DUPILUMAB
     Indication: PRODUCT USED FOR UNKNOWN INDICATION
     Dosage: 400 MG, 1X
     Route: 058
     Dates: start: 201910, end: 201910
  2. DUPIXENT [Suspect]
     Active Substance: DUPILUMAB
     Dosage: 200 MG, QOW
     Route: 058
     Dates: start: 201910

REACTIONS (14)
  - Injection site erythema [Unknown]
  - Eyelids pruritus [Unknown]
  - Swelling of eyelid [Unknown]
  - Incorrect dose administered by device [Unknown]
  - Blepharitis [Unknown]
  - Eye inflammation [Unknown]
  - Eye pruritus [Unknown]
  - Erythema of eyelid [Unknown]
  - Device leakage [Unknown]
  - Fungal skin infection [Not Recovered/Not Resolved]
  - Dry skin [Unknown]
  - Ocular hyperaemia [Unknown]
  - Eczema [Unknown]
  - Eye swelling [Unknown]

NARRATIVE: CASE EVENT DATE: 2019
